FAERS Safety Report 23794613 (Version 1)
Quarter: 2024Q2

REPORT INFORMATION
  Report Type: Report from Study
  Country: BR (occurrence: BR)
  Receive Date: 20240429
  Receipt Date: 20240429
  Transmission Date: 20240716
  Serious: Yes (Other)
  Sender: FDA-Public Use
  Company Number: BR-TAKEDA-2018TUS008200

PATIENT
  Age: 54 Year
  Sex: Female

DRUGS (2)
  1. VEDOLIZUMAB [Suspect]
     Active Substance: VEDOLIZUMAB
     Indication: Colitis ulcerative
     Dosage: 300 MILLIGRAM
     Route: 042
     Dates: start: 20170807
  2. CALCIUM [Concomitant]
     Active Substance: CALCIUM
     Dosage: UNK

REACTIONS (7)
  - Metabolic surgery [Unknown]
  - Excessive skin [Recovering/Resolving]
  - Off label use [Unknown]
  - Frequent bowel movements [Unknown]
  - Abdominal pain [Unknown]
  - Product dose omission issue [Unknown]
  - Accessory breast [Recovering/Resolving]

NARRATIVE: CASE EVENT DATE: 20180313
